FAERS Safety Report 21563303 (Version 2)
Quarter: 2022Q4

REPORT INFORMATION
  Report Type: Spontaneous
  Country: US (occurrence: US)
  Receive Date: 20221108
  Receipt Date: 20221116
  Transmission Date: 20230113
  Serious: Yes (Other)
  Sender: FDA-Public Use
  Company Number: US-drreddys-LIT/USA/22/0156794

PATIENT
  Age: 68 Year
  Sex: Male

DRUGS (1)
  1. DAPTOMYCIN [Suspect]
     Active Substance: DAPTOMYCIN
     Indication: Antibiotic therapy

REACTIONS (3)
  - Pneumonia klebsiella [Recovered/Resolved]
  - Eosinophilic pneumonia [Recovered/Resolved]
  - Acute kidney injury [Unknown]
